FAERS Safety Report 7622725-7 (Version None)
Quarter: 2011Q3

REPORT INFORMATION
  Report Type: 
  Country: None (occurrence: None)
  Receive Date: 20110719
  Receipt Date: 20110719
  Transmission Date: 20111222
  Serious: Yes (Life-Threatening, Hospitalization)
  Sender: FDA-Public Use
  Company Number: None

PATIENT
  Age: 65 Year
  Sex: Female
  Weight: 124.7392 kg

DRUGS (1)
  1. FLEXERIL [Suspect]

REACTIONS (3)
  - ATRIAL FIBRILLATION [None]
  - DYSPNOEA [None]
  - INTRACARDIAC THROMBUS [None]
